FAERS Safety Report 6384168-6 (Version None)
Quarter: 2009Q4

REPORT INFORMATION
  Report Type: 
  Country: None (occurrence: None)
  Receive Date: 20091001
  Receipt Date: 20090923
  Transmission Date: 20100525
  Serious: Yes (Hospitalization)
  Sender: FDA-Public Use
  Company Number: A0731242A

PATIENT
  Age: 66 Year
  Sex: Female
  Weight: 72.7 kg

DRUGS (14)
  1. AVANDIA [Suspect]
     Dosage: 4MG TWICE PER DAY
     Route: 048
     Dates: start: 20030807, end: 20080201
  2. ESTRADIOL [Concomitant]
  3. REGULAR INSULIN [Concomitant]
     Dates: start: 19840101
  4. LANTUS [Concomitant]
     Dates: start: 20030101
  5. MECLIZINE [Concomitant]
  6. ZAFIRLUKAST [Concomitant]
  7. CALCIUM + D [Concomitant]
  8. METOCLOPRAMIDE [Concomitant]
  9. TERAZOSIN HCL [Concomitant]
  10. SYNTHROID [Concomitant]
  11. SERZONE [Concomitant]
  12. CRESTOR [Concomitant]
  13. FLONASE [Concomitant]
  14. XOPENEX [Concomitant]

REACTIONS (2)
  - CEREBROVASCULAR ACCIDENT [None]
  - TRANSIENT ISCHAEMIC ATTACK [None]
